FAERS Safety Report 15857260 (Version 2)
Quarter: 2019Q1

REPORT INFORMATION
  Report Type: Report from Study
  Country: ZA (occurrence: ZA)
  Receive Date: 20190123
  Receipt Date: 20190313
  Transmission Date: 20190417
  Serious: Yes (Life-Threatening)
  Sender: FDA-Public Use
  Company Number: ZA-SAKK-2019SA007953AA

PATIENT
  Age: 63 Year
  Sex: Female

DRUGS (2)
  1. OPTISULIN (INSULIN GLARGINE) [Suspect]
     Active Substance: INSULIN GLARGINE
     Dosage: BT-8 U, QD
     Dates: start: 20181011
  2. INSULIN GLULISINE [Suspect]
     Active Substance: INSULIN GLULISINE
     Dosage: 3XD-10 UNITS
     Dates: start: 20181011

REACTIONS (6)
  - Influenza [Not Recovered/Not Resolved]
  - Peripheral swelling [Unknown]
  - Arthralgia [Not Recovered/Not Resolved]
  - Pain [Not Recovered/Not Resolved]
  - Vulvovaginal pruritus [Unknown]
  - Muscle spasms [Unknown]

NARRATIVE: CASE EVENT DATE: 20190310
